FAERS Safety Report 4982800-2 (Version None)
Quarter: 2006Q2

REPORT INFORMATION
  Report Type: 
  Country: None (occurrence: None)
  Receive Date: 20060425
  Receipt Date: 20060123
  Transmission Date: 20061013
  Serious: Yes (Hospitalization, Disabling)
  Sender: FDA-Public Use
  Company Number: US-MERCK-0601USA02702

PATIENT
  Age: 59 Year
  Sex: Male
  Weight: 89 kg

DRUGS (1)
  1. VIOXX [Suspect]
     Indication: CHEST PAIN
     Route: 048
     Dates: start: 20020101, end: 20040101

REACTIONS (3)
  - ARTERIAL OCCLUSIVE DISEASE [None]
  - CEREBROVASCULAR ACCIDENT [None]
  - MYOCARDIAL INFARCTION [None]
